FAERS Safety Report 21586437 (Version 1)
Quarter: 2022Q4

REPORT INFORMATION
  Report Type: Spontaneous
  Country: IT (occurrence: IT)
  Receive Date: 20221112
  Receipt Date: 20221112
  Transmission Date: 20230113
  Serious: Yes (Hospitalization)
  Sender: FDA-Public Use
  Company Number: IT-AUROBINDO-AUR-APL-2014-04121

PATIENT
  Age: 44 Year
  Sex: Female

DRUGS (3)
  1. ALPRAZOLAM [Suspect]
     Active Substance: ALPRAZOLAM
     Dosage: 10 DF,TOTAL,
     Route: 048
     Dates: start: 20140215, end: 20140215
  2. SERTRALINE HYDROCHLORIDE [Suspect]
     Active Substance: SERTRALINE HYDROCHLORIDE
     Indication: Product used for unknown indication
     Dosage: 10 DF,TOTAL,
     Route: 048
     Dates: start: 20140215, end: 20140215
  3. TOPIRAMATE [Suspect]
     Active Substance: TOPIRAMATE
     Indication: Product used for unknown indication
     Dosage: 10 DF,TOTAL,
     Route: 048
     Dates: start: 20140215, end: 20140215

REACTIONS (4)
  - Confusional state [Unknown]
  - Agitation [Unknown]
  - Vomiting [Unknown]
  - Drug abuse [Unknown]

NARRATIVE: CASE EVENT DATE: 20140215
